FAERS Safety Report 6827698-2 (Version None)
Quarter: 2010Q3

REPORT INFORMATION
  Report Type: 
  Country: None (occurrence: None)
  Receive Date: 20100709
  Receipt Date: 20070122
  Transmission Date: 20110219
  Serious: No
  Sender: FDA-Public Use
  Company Number: US-PFIZER INC-2007006994

PATIENT
  Sex: Female
  Weight: 65.77 kg

DRUGS (6)
  1. CHANTIX [Suspect]
     Indication: SMOKING CESSATION THERAPY
     Dates: start: 20070115
  2. NEXIUM [Concomitant]
     Dates: start: 20070101
  3. BENICAR [Concomitant]
     Indication: HYPERTENSION
  4. PREDNISONE [Concomitant]
  5. ACETYLSALICYLIC ACID [Concomitant]
  6. CALTRATE [Concomitant]

REACTIONS (2)
  - ABDOMINAL PAIN UPPER [None]
  - FLATULENCE [None]
